FAERS Safety Report 8858449 (Version 2)
Quarter: 2012Q4

REPORT INFORMATION
  Report Type: 
  Country: ES (occurrence: ES)
  Receive Date: 20121025
  Receipt Date: 20121111
  Transmission Date: 20130627
  Serious: Yes (Death)
  Sender: FDA-Public Use
  Company Number: ES-BRISTOL-MYERS SQUIBB COMPANY-17040494

PATIENT
  Age: 57 Year
  Sex: Male

DRUGS (8)
  1. SPRYCEL [Suspect]
     Indication: CHRONIC MYELOMONOCYTIC LEUKAEMIA
     Route: 048
     Dates: start: 20120125, end: 20120125
  2. MELPHALAN [Suspect]
     Indication: CHRONIC MYELOMONOCYTIC LEUKAEMIA
     Route: 042
     Dates: start: 20120125, end: 20120131
  3. FLUDARABINE [Suspect]
     Route: 042
     Dates: start: 20120124, end: 20120130
  4. DEXCHLORPHENIRAMINE [Concomitant]
     Indication: PRURITUS
     Route: 042
     Dates: start: 20120124, end: 20120202
  5. TENOFOVIR [Concomitant]
     Indication: HEPATITIS B
     Route: 048
     Dates: start: 20120127
  6. CICLOSPORIN [Concomitant]
     Route: 042
     Dates: start: 20120125
  7. VANCOMYCIN [Concomitant]
     Route: 042
     Dates: start: 20120201, end: 20120209
  8. SULFAMETHOXAZOLE + TRIMETHOPRIM [Concomitant]
     Indication: ABDOMINAL INFECTION
     Route: 042
     Dates: start: 20120124, end: 20120130

REACTIONS (3)
  - Hepatic encephalopathy [Fatal]
  - Acute hepatic failure [Fatal]
  - Parotitis [Fatal]
